FAERS Safety Report 10291936 (Version 2)
Quarter: 2014Q3

REPORT INFORMATION
  Report Type: Spontaneous
  Country: US (occurrence: US)
  Receive Date: 20140710
  Receipt Date: 20140710
  Transmission Date: 20150326
  Serious: No
  Sender: FDA-Public Use
  Company Number: US-PURDUE-USA-2013-0104278

PATIENT
  Sex: Female
  Weight: 102.4 kg

DRUGS (3)
  1. BUTRANS [Suspect]
     Active Substance: BUPRENORPHINE
     Indication: PAIN
     Dosage: UNK
     Route: 062
     Dates: start: 20130523, end: 20130822
  2. VICODIN [Suspect]
     Active Substance: ACETAMINOPHEN\HYDROCODONE BITARTRATE
     Indication: PAIN
     Dosage: 7.5 MG, UNK
  3. BUTRANS [Suspect]
     Active Substance: BUPRENORPHINE
     Dosage: 20 UNK, UNK
     Route: 062
     Dates: start: 20130523, end: 20130822

REACTIONS (4)
  - Application site discolouration [Unknown]
  - Application site rash [Recovering/Resolving]
  - Application site irritation [Unknown]
  - Application site pruritus [Unknown]
